FAERS Safety Report 13503121 (Version 1)
Quarter: 2017Q2

REPORT INFORMATION
  Report Type: Spontaneous
  Country: US (occurrence: US)
  Receive Date: 20170501
  Receipt Date: 20170501
  Transmission Date: 20170830
  Serious: No
  Sender: FDA-Public Use
  Company Number: None

PATIENT
  Age: 78 Year
  Sex: Female

DRUGS (1)
  1. CAPECITABINE TAB 500MG [Suspect]
     Active Substance: CAPECITABINE

REACTIONS (6)
  - Vomiting [None]
  - Oral pain [None]
  - Diarrhoea [None]
  - Weight decreased [None]
  - Palmar-plantar erythrodysaesthesia syndrome [None]
  - Tenderness [None]

NARRATIVE: CASE EVENT DATE: 20170501
